FAERS Safety Report 8009081-X (Version None)
Quarter: 2011Q4

REPORT INFORMATION
  Report Type: 
  Country: None (occurrence: None)
  Receive Date: 20111227
  Receipt Date: 20111219
  Transmission Date: 20120403
  Serious: No
  Sender: FDA-Public Use
  Company Number: US-PFIZER INC-2011308351

PATIENT
  Sex: Female
  Weight: 70.295 kg

DRUGS (1)
  1. FLECTOR [Suspect]
     Indication: PAIN
     Dosage: UNK
     Dates: start: 20111121, end: 20111122

REACTIONS (2)
  - PAIN [None]
  - DRUG INEFFECTIVE [None]
